FAERS Safety Report 5657820-5 (Version None)
Quarter: 2008Q1

REPORT INFORMATION
  Report Type: 
  Country: None (occurrence: None)
  Receive Date: 20080310
  Receipt Date: 20071108
  Transmission Date: 20080703
  Serious: No
  Sender: FDA-Public Use
  Company Number: US-ASTRAZENECA-2007UW25948

PATIENT
  Age: 64 Year
  Sex: Male

DRUGS (3)
  1. LISINOPRIL [Suspect]
     Indication: HYPERTENSION
     Route: 048
     Dates: end: 20071001
  2. METHOTREXATE [Suspect]
     Indication: OEDEMA PERIPHERAL
     Dates: start: 20070601, end: 20070101
  3. FELODIPINE [Concomitant]
     Indication: HYPERTENSION

REACTIONS (5)
  - ASTHMA [None]
  - BRONCHITIS [None]
  - FATIGUE [None]
  - OEDEMA PERIPHERAL [None]
  - PRODUCTIVE COUGH [None]
